FAERS Safety Report 8290342 (Version 4)
Quarter: 2013Q4

REPORT INFORMATION
  Report Type: Report from Study
  Country: FR (occurrence: FR)
  Receive Date: 20111214
  Receipt Date: 20131008
  Transmission Date: 20140711
  Serious: Yes (Other)
  Sender: FDA-Public Use
  Company Number: FR-ASTELLAS-2011EU009106

PATIENT
  Sex: Male
  Weight: 92 kg

DRUGS (9)
  1. TACROLIMUS MR4 CAPSULES [Suspect]
     Indication: ORGAN TRANSPLANT
     Dosage: 7 MG, UID/QD
     Route: 048
     Dates: start: 20111115
  2. TACROLIMUS MR4 CAPSULES [Suspect]
     Indication: PROPHYLAXIS AGAINST TRANSPLANT REJECTION
  3. CORTICOSTEROID NOS [Suspect]
     Dosage: 5 MG, UNKNOWN/D
     Route: 065
  4. CORTANCYL [Suspect]
     Indication: PROPHYLAXIS AGAINST TRANSPLANT REJECTION
     Dosage: 5 MG, UID/QD
     Route: 048
     Dates: start: 20040427
  5. CELLCEPT /01275102/ [Suspect]
     Indication: PROPHYLAXIS AGAINST TRANSPLANT REJECTION
     Dosage: 500 MG, BID
     Route: 048
     Dates: start: 20040427
  6. ARANESP [Concomitant]
     Indication: ANAEMIA
     Dosage: 30 UG, CYCLIC
     Route: 058
     Dates: start: 20080803
  7. INEGY [Concomitant]
     Indication: DYSLIPIDAEMIA
     Dosage: 1 DF, UID/QD
     Route: 048
     Dates: start: 20100426
  8. MOPRAL                             /00661201/ [Concomitant]
     Indication: GASTROINTESTINAL ULCER
     Dosage: 1 DF, UID/QD
     Route: 048
     Dates: start: 20100103
  9. SPECIAFOLDINE [Concomitant]
     Dosage: 5 MG, UID/QD
     Route: 048
     Dates: start: 20100426

REACTIONS (2)
  - Kidney fibrosis [Unknown]
  - Hepatitis B DNA assay positive [Recovered/Resolved]
